FAERS Safety Report 9166220 (Version 1)
Quarter: 2013Q1

REPORT INFORMATION
  Report Type: Spontaneous
  Country: CA (occurrence: CA)
  Receive Date: 20130315
  Receipt Date: 20130315
  Transmission Date: 20140127
  Serious: Yes (Other)
  Sender: FDA-Public Use
  Company Number: CA-AMGEN-CANSP2013015624

PATIENT
  Age: 67 Year
  Sex: Female
  Weight: 64.55 kg

DRUGS (1)
  1. PROLIA [Suspect]
     Indication: OSTEOPOROSIS
     Dosage: 60 MG, UNK
     Dates: start: 20120208

REACTIONS (2)
  - Knee arthroplasty [Recovering/Resolving]
  - Post procedural complication [Recovering/Resolving]
